FAERS Safety Report 9473305 (Version 1)
Quarter: 2013Q3

REPORT INFORMATION
  Report Type: Spontaneous
  Country: US (occurrence: US)
  Receive Date: 20130823
  Receipt Date: 20130823
  Transmission Date: 20140515
  Serious: No
  Sender: FDA-Public Use
  Company Number: US-BRISTOL-MYERS SQUIBB COMPANY-18871210

PATIENT
  Sex: 0

DRUGS (1)
  1. SPRYCEL [Suspect]
     Indication: CHRONIC MYELOID LEUKAEMIA
     Dosage: INITIAL DOSE 50 MG?INCREASED TO 100MG?AGAIN REDUCED TO 50MG

REACTIONS (1)
  - Pleural effusion [Recovered/Resolved]
